FAERS Safety Report 9791557 (Version 2)
Quarter: 2014Q1

REPORT INFORMATION
  Report Type: Report from Study
  Country: FR (occurrence: FR)
  Receive Date: 20140101
  Receipt Date: 20140101
  Transmission Date: 20141002
  Serious: Yes (Hospitalization)
  Sender: FDA-Public Use
  Company Number: PHHO2011FR021107

PATIENT
  Age: 45 Year
  Sex: Male
  Weight: 110 kg

DRUGS (6)
  1. SOM230 [Suspect]
     Indication: ACROMEGALY
     Dosage: 40 MG, UNK
     Route: 030
     Dates: start: 20110913, end: 20111208
  2. SANDOSTATIN LAR [Suspect]
     Indication: ACROMEGALY
  3. LEVOTHYROX [Concomitant]
     Indication: HYPOTHYROIDISM
     Dosage: 5 MG, QD
     Route: 048
     Dates: start: 201004
  4. AMLOC [Concomitant]
     Indication: HYPERTENSION
     Dosage: 5 MG, QD
     Route: 048
     Dates: start: 200907
  5. HCG [Concomitant]
     Indication: HYPOGONADISM
     Dosage: 1500 U, TWICE A WEEK
     Dates: start: 2008
  6. CREON [Concomitant]
     Indication: PANCREATIC INSUFFICIENCY
     Dosage: 25000 U, TID
     Route: 048
     Dates: start: 20110623

REACTIONS (1)
  - Diabetes mellitus [Recovering/Resolving]
